FAERS Safety Report 16183122 (Version 1)
Quarter: 2019Q2

REPORT INFORMATION
  Report Type: Spontaneous
  Country: CN (occurrence: CN)
  Receive Date: 20190411
  Receipt Date: 20190411
  Transmission Date: 20190711
  Serious: Yes (Other)
  Sender: FDA-Public Use
  Company Number: CN-ROCHE-2289504

PATIENT
  Age: 50 Year
  Sex: Male

DRUGS (14)
  1. BEVACIZUMAB. [Suspect]
     Active Substance: BEVACIZUMAB
     Indication: RECTAL CANCER
     Route: 065
     Dates: start: 20161116, end: 20170329
  2. OXALIPLATIN. [Suspect]
     Active Substance: OXALIPLATIN
     Indication: METASTASES TO LUNG
     Route: 065
     Dates: start: 20170530
  3. FLUOROURACIL. [Concomitant]
     Active Substance: FLUOROURACIL
     Indication: METASTASES TO LUNG
     Route: 065
     Dates: start: 20150615
  4. FLUOROURACIL. [Concomitant]
     Active Substance: FLUOROURACIL
     Route: 065
     Dates: start: 20170530
  5. FLUOROURACIL. [Concomitant]
     Active Substance: FLUOROURACIL
     Indication: RECTAL CANCER
     Route: 065
     Dates: start: 20161116, end: 20170329
  6. CETUXIMAB. [Concomitant]
     Active Substance: CETUXIMAB
     Indication: RECTAL CANCER
     Route: 065
     Dates: start: 20170825
  7. FOLINIC ACID [Concomitant]
     Active Substance: LEUCOVORIN
     Indication: METASTASES TO LUNG
     Route: 065
     Dates: start: 20150615
  8. IRINOTECAN [Concomitant]
     Active Substance: IRINOTECAN
     Indication: METASTASES TO LUNG
     Route: 065
     Dates: start: 20161116, end: 20170329
  9. CETUXIMAB. [Concomitant]
     Active Substance: CETUXIMAB
     Indication: METASTASES TO LUNG
     Route: 065
     Dates: start: 20170530
  10. OXALIPLATIN. [Suspect]
     Active Substance: OXALIPLATIN
     Indication: RECTAL CANCER
     Route: 065
     Dates: start: 20150615
  11. FOLINIC ACID [Concomitant]
     Active Substance: LEUCOVORIN
     Indication: RECTAL CANCER
     Route: 065
     Dates: start: 20161116, end: 20170329
  12. BEVACIZUMAB. [Suspect]
     Active Substance: BEVACIZUMAB
     Indication: METASTASES TO LUNG
     Route: 065
     Dates: start: 20150615
  13. FOLINIC ACID [Concomitant]
     Active Substance: LEUCOVORIN
     Route: 065
     Dates: start: 20170530
  14. IRINOTECAN [Concomitant]
     Active Substance: IRINOTECAN
     Indication: RECTAL CANCER

REACTIONS (6)
  - Emphysema [Unknown]
  - Cholecystitis [Unknown]
  - Renal cyst [Unknown]
  - Hepatic steatosis [Unknown]
  - Prostatic calcification [Unknown]
  - Hypersensitivity [Unknown]
